FAERS Safety Report 10569221 (Version 1)
Quarter: 2014Q4

REPORT INFORMATION
  Report Type: Spontaneous
  Country: IR (occurrence: IR)
  Receive Date: 20141106
  Receipt Date: 20141106
  Transmission Date: 20150529
  Serious: Yes (Other)
  Sender: FDA-Public Use
  Company Number: IR-ASTRAZENECA-2014SE82729

PATIENT
  Age: 46 Year
  Sex: Female

DRUGS (1)
  1. MARCAINE HYPERBARIC [Suspect]
     Active Substance: BUPIVACAINE HYDROCHLORIDE
     Indication: ANAESTHESIA
     Route: 037

REACTIONS (8)
  - Anaesthetic complication [None]
  - Urinary retention [None]
  - Extradural abscess [None]
  - Extradural haematoma [None]
  - Cauda equina syndrome [Recovering/Resolving]
  - Painful defaecation [None]
  - Neurotoxicity [None]
  - Extradural neoplasm [None]
